FAERS Safety Report 4745557-6 (Version None)
Quarter: 2005Q3

REPORT INFORMATION
  Report Type: 
  Country: None (occurrence: None)
  Receive Date: 20050812
  Receipt Date: 20050805
  Transmission Date: 20060218
  Serious: Yes (Hospitalization)
  Sender: FDA-Public Use
  Company Number: 2005-01369

PATIENT
  Age: 59 Year
  Sex: Female

DRUGS (9)
  1. PREDNISONE [Suspect]
     Indication: ASTHMA
     Dosage: 40 MG, (SUBSEQUENT TAPERED), ORAL
     Route: 048
     Dates: start: 20050217
  2. PREDNISONE [Suspect]
     Indication: CHRONIC OBSTRUCTIVE PULMONARY DISEASE
     Dosage: 40 MG, (SUBSEQUENT TAPERED), ORAL
     Route: 048
     Dates: start: 20050217
  3. LASIX [Concomitant]
  4. COZAAR (LOSARAN POTASSIUM) [Concomitant]
  5. ALDACTONE [Concomitant]
  6. LANOXIL [Concomitant]
  7. ALBUTEROL [Concomitant]
  8. GUAIFENESIN [Concomitant]
  9. DESLORATADINE (DESLORATADINE) [Concomitant]

REACTIONS (11)
  - ARRHYTHMIA [None]
  - ASTHENIA [None]
  - CEREBROVASCULAR DISORDER [None]
  - CONVULSION [None]
  - DISORIENTATION [None]
  - DRUG WITHDRAWAL SYNDROME [None]
  - FALL [None]
  - HYPOAESTHESIA [None]
  - MENTAL STATUS CHANGES [None]
  - OVERDOSE [None]
  - SYNCOPE [None]
